FAERS Safety Report 20935347 (Version 1)
Quarter: 2022Q2

REPORT INFORMATION
  Report Type: Spontaneous
  Country: US (occurrence: US)
  Receive Date: 20220609
  Receipt Date: 20220609
  Transmission Date: 20220721
  Serious: No
  Sender: FDA-Public Use
  Company Number: US-GLENMARK PHARMACEUTICALS-2022GMK070547

PATIENT

DRUGS (3)
  1. MUPIROCIN [Suspect]
     Active Substance: MUPIROCIN
     Indication: Epistaxis
     Dosage: UNK, BID
     Route: 045
     Dates: start: 20220208, end: 20220209
  2. MUPIROCIN [Suspect]
     Active Substance: MUPIROCIN
     Indication: Sinus congestion
  3. MUPIROCIN [Suspect]
     Active Substance: MUPIROCIN
     Indication: Bacterial infection

REACTIONS (2)
  - Drug effective for unapproved indication [Unknown]
  - Incorrect route of product administration [Unknown]

NARRATIVE: CASE EVENT DATE: 20220208
